FAERS Safety Report 9525807 (Version 1)
Quarter: 2013Q1

REPORT INFORMATION
  Report Type: Spontaneous
  Country: US (occurrence: None)
  Receive Date: 20130314
  Receipt Date: 20130314
  Transmission Date: 20140127
  Serious: No
  Sender: FDA-Public Use
  Company Number: 1205USA04891

PATIENT
  Age: 50 Year
  Sex: Female
  Weight: 51.8 kg

DRUGS (4)
  1. EMEND (FOSAPREPITANT DIMEGLUMINE) [Suspect]
     Indication: NAUSEA
     Dosage: 150 MG, ONCE, IV
     Route: 041
     Dates: start: 20120524
  2. EMEND (FOSAPREPITANT DIMEGLUMINE) [Suspect]
     Indication: PROPHYLAXIS
     Dosage: 150 MG, ONCE, IV
     Route: 041
     Dates: start: 20120524
  3. TAXOL (PACLITAXEL) [Concomitant]
  4. TAXOL (PACLITAXEL) [Concomitant]

REACTIONS (2)
  - Chest pain [None]
  - Dyspnoea [None]
